FAERS Safety Report 15331993 (Version 1)
Quarter: 2018Q4

REPORT INFORMATION
  Report Type: Spontaneous
  Country: None (occurrence: DE)
  Receive Date: 20180829
  Receipt Date: 20180829
  Transmission Date: 20190204
  Serious: Yes (Other)
  Sender: FDA-Public Use
  Company Number: DE-MEDAC PHARMA, INC.-2054447

PATIENT
  Age: 58 Year
  Sex: Male

DRUGS (2)
  1. PREDNISOLONE. [Concomitant]
     Active Substance: PREDNISOLONE
  2. METEX (METHOTREXATE SODIUM) [Suspect]
     Active Substance: METHOTREXATE SODIUM
     Dates: start: 201709, end: 201807

REACTIONS (8)
  - Fatigue [Unknown]
  - Abscess jaw [Recovering/Resolving]
  - Toothache [Unknown]
  - Impaired healing [Not Recovered/Not Resolved]
  - Malaise [Unknown]
  - Cataract [Not Recovered/Not Resolved]
  - Gingivitis [Unknown]
  - Abdominal pain [Unknown]

NARRATIVE: CASE EVENT DATE: 201802
